FAERS Safety Report 4982432-6 (Version None)
Quarter: 2006Q2

REPORT INFORMATION
  Report Type: 
  Country: None (occurrence: None)
  Receive Date: 20060419
  Receipt Date: 20060412
  Transmission Date: 20061013
  Serious: Yes (Disabling, Other)
  Sender: FDA-Public Use
  Company Number: 2006050923

PATIENT
  Sex: Female

DRUGS (1)
  1. ZYRTEC [Suspect]

REACTIONS (1)
  - DISABILITY [None]
